FAERS Safety Report 20587706 (Version 2)
Quarter: 2022Q2

REPORT INFORMATION
  Report Type: Spontaneous
  Country: GB (occurrence: GB)
  Receive Date: 20220314
  Receipt Date: 20220510
  Transmission Date: 20220721
  Serious: Yes (Hospitalization, Other)
  Sender: FDA-Public Use
  Company Number: GB-LEO Pharma-341471

PATIENT
  Age: 29 Year
  Sex: Male

DRUGS (4)
  1. PROTOPIC [Suspect]
     Active Substance: TACROLIMUS
     Dosage: DOSAGE : 0.03% APPLIED TOPICALLY ON THE FACE 3 TIMES A WEEK. 0.1% APPLIED TOPICALLY ON THE BODY 2 TI
     Route: 061
  2. PROTOPIC [Suspect]
     Active Substance: TACROLIMUS
     Dosage: DOSAGE: 0.1% APPLIED TOPICALLY ON THE FACE AND BODY?STARTED: SEP-2014 ?STOPPED: 2015
     Route: 061
  3. PROTOPIC [Suspect]
     Active Substance: TACROLIMUS
     Indication: Eczema
     Dosage: DOSAGE : 0.03% APPLIED TOPICALLY ON THE FACE 3 TIMES A WEEK. 0.1% APPLIED TOPICALLY ON THE BODY 2 TI
     Route: 061
  4. PROTOPIC [Suspect]
     Active Substance: TACROLIMUS
     Indication: Eczema
     Dosage: DOSAGE: 0.1% APPLIED TOPICALLY ON THE FACE AND BODY?STARTED: SEP-2014 ?STOPPED: 2015
     Route: 061

REACTIONS (9)
  - Feeling hot [Recovered/Resolved]
  - Erythema [Recovered/Resolved]
  - Rosacea [Recovered/Resolved]
  - Osteomyelitis acute [Recovering/Resolving]
  - Paronychia [Recovered/Resolved]
  - Epididymitis [Recovered/Resolved]
  - Epididymitis [Recovered/Resolved]
  - Impetigo [Recovered/Resolved]
  - Epididymitis [Recovered/Resolved]

NARRATIVE: CASE EVENT DATE: 20140101
